FAERS Safety Report 7790526-5 (Version None)
Quarter: 2011Q3

REPORT INFORMATION
  Report Type: 
  Country: None (occurrence: None)
  Receive Date: 20110930
  Receipt Date: 20110926
  Transmission Date: 20111222
  Serious: Yes (Life-Threatening, Hospitalization)
  Sender: FDA-Public Use
  Company Number: PHHO2011FR11370

PATIENT
  Sex: Male
  Weight: 63 kg

DRUGS (14)
  1. BISOPROLOL FUMARATE [Concomitant]
     Dosage: 2.5 MG, UNK
     Route: 048
  2. DORZOLAMIDE [Concomitant]
     Dosage: UNK
     Route: 047
  3. ALFUZOSIN HCL [Concomitant]
  4. VALGANCICLOVIR [Concomitant]
     Dosage: 450 MG, BID
     Route: 048
  5. CALCIUM CARBONATE [Concomitant]
     Dosage: 500 MG, UNK
     Route: 048
  6. ESOMEPRAZOLE SODIUM [Concomitant]
     Dosage: 20 MG, UNK
     Route: 048
  7. NEORAL [Suspect]
     Indication: RENAL TRANSPLANT
     Dosage: 250 MG, BID
     Route: 048
     Dates: start: 20110318
  8. PREDNISONE [Suspect]
     Indication: RENAL TRANSPLANT
     Dosage: 5 MG, UNK
     Route: 048
     Dates: start: 20110319
  9. MYCOPHENOLATE MOFETIL (CELLCEPT) [Suspect]
     Indication: RENAL TRANSPLANT
     Dosage: 250 MG, BID
     Route: 048
     Dates: start: 20110317, end: 20110917
  10. ASPIRIN [Concomitant]
     Dosage: 6 G, UNK
     Route: 048
  11. LYRICA [Concomitant]
     Dosage: 25 MG, UNK
     Route: 048
  12. BACTRIM [Concomitant]
     Dosage: 400/80 MG
     Route: 048
  13. IMOVANE [Concomitant]
     Dosage: 3.75 MG, UNK
     Route: 048
  14. SODIUM BICARBONATE [Concomitant]
     Dosage: 6 G, UNK
     Route: 048

REACTIONS (9)
  - PNEUMONIA [None]
  - KIDNEY TRANSPLANT REJECTION [None]
  - AGRANULOCYTOSIS [None]
  - URINARY TRACT INFECTION [None]
  - RENAL FAILURE [None]
  - NEPHROLITHIASIS [None]
  - NEPHROPATHY TOXIC [None]
  - SEPTIC SHOCK [None]
  - CYTOMEGALOVIRUS INFECTION [None]
